FAERS Safety Report 21988787 (Version 1)
Quarter: 2023Q1

REPORT INFORMATION
  Report Type: Spontaneous
  Country: US (occurrence: None)
  Receive Date: 20230214
  Receipt Date: 20230214
  Transmission Date: 20230417
  Serious: No
  Sender: FDA-Public Use
  Company Number: 2023A036888

PATIENT
  Age: 761 Month
  Sex: Female

DRUGS (2)
  1. SYMBICORT [Suspect]
     Active Substance: BUDESONIDE\FORMOTEROL FUMARATE DIHYDRATE
     Indication: Asthma
     Dosage: 160/4.5 MCG, ONE INHALATION WITH A SPACER, TWICE DAILY
     Route: 055
     Dates: end: 2022
  2. BUDESONIDE\FORMOTEROL [Suspect]
     Active Substance: BUDESONIDE\FORMOTEROL
     Indication: Asthma
     Dosage: 160/4.5 MCG, ONE INHALATION WITH A SPACER, TWICE DAILY
     Route: 055
     Dates: start: 20230131, end: 202302

REACTIONS (7)
  - Bronchitis [Recovered/Resolved]
  - Immunodeficiency [Not Recovered/Not Resolved]
  - Cough [Recovered/Resolved]
  - Device issue [Unknown]
  - Intentional product misuse [Unknown]
  - Off label use [Recovered/Resolved]
  - Ill-defined disorder [Not Recovered/Not Resolved]

NARRATIVE: CASE EVENT DATE: 20230201
